FAERS Safety Report 23384018 (Version 13)
Quarter: 2025Q3

REPORT INFORMATION
  Report Type: Report from Study
  Country: EU (occurrence: EU)
  Receive Date: 20240109
  Receipt Date: 20250821
  Transmission Date: 20251021
  Serious: Yes (Death, Life-Threatening, Hospitalization)
  Sender: ABBVIE
  Company Number: EU-ABBVIE-5577168

PATIENT
  Age: 56 Year
  Sex: Male
  Weight: 76 kg

DRUGS (18)
  1. HUMIRA [Suspect]
     Active Substance: ADALIMUMAB
     Indication: Colitis ulcerative
     Route: 058
     Dates: start: 201707, end: 20180403
  2. HUMIRA [Suspect]
     Active Substance: ADALIMUMAB
     Route: 058
     Dates: start: 20180404, end: 20210208
  3. PENTASA [Concomitant]
     Active Substance: MESALAMINE
     Indication: Colitis ulcerative
     Route: 048
     Dates: start: 20170807, end: 20240112
  4. VEDOLIZUMAB [Concomitant]
     Active Substance: VEDOLIZUMAB
     Indication: Colitis ulcerative
     Route: 041
     Dates: start: 20210615, end: 20240112
  5. ASPIRIN [Concomitant]
     Active Substance: ASPIRIN
     Indication: Ischaemic cardiomyopathy
     Route: 048
     Dates: start: 20100907, end: 20240112
  6. ATORVASTATIN [Concomitant]
     Active Substance: ATORVASTATIN
     Indication: Ischaemic cardiomyopathy
     Route: 048
     Dates: start: 20101109
  7. LOSARTAN [Concomitant]
     Active Substance: LOSARTAN
     Indication: Ischaemic cardiomyopathy
     Route: 048
     Dates: start: 20190205, end: 20240112
  8. OMEPRAZOLE [Concomitant]
     Active Substance: OMEPRAZOLE
     Indication: Prophylaxis
     Route: 048
     Dates: start: 20231219, end: 20231219
  9. OMEPRAZOLE [Concomitant]
     Active Substance: OMEPRAZOLE
     Indication: Prophylaxis
     Route: 048
     Dates: start: 20231221
  10. OXYGEN [Concomitant]
     Active Substance: OXYGEN
     Indication: Oxygen therapy
     Route: 045
     Dates: start: 20231221, end: 20240112
  11. ENOXAPARIN [Concomitant]
     Active Substance: ENOXAPARIN
     Indication: Prophylaxis
     Route: 058
     Dates: start: 20231219, end: 20231219
  12. ENOXAPARIN [Concomitant]
     Active Substance: ENOXAPARIN
     Indication: Prophylaxis
     Route: 058
     Dates: start: 20231221, end: 20240112
  13. SACCHAROMYCES CEREVISIAE [Concomitant]
     Active Substance: SACCHAROMYCES CEREVISIAE
     Indication: Prophylaxis
     Route: 048
     Dates: start: 20231228, end: 20240112
  14. HYDROCHLOROTHIAZIDE [Concomitant]
     Active Substance: HYDROCHLOROTHIAZIDE
     Indication: Prophylaxis
     Route: 048
     Dates: start: 20231218, end: 20231219
  15. HYDROCHLOROTHIAZIDE [Concomitant]
     Active Substance: HYDROCHLOROTHIAZIDE
     Indication: Prophylaxis
     Route: 048
     Dates: start: 20231221
  16. METHYLPREDNISOLONE [Concomitant]
     Active Substance: METHYLPREDNISOLONE
     Indication: Supplementation therapy
     Dosage: 40-60 MG
     Route: 042
     Dates: start: 20231221, end: 20240112
  17. NINTEDANIB [Concomitant]
     Active Substance: NINTEDANIB
     Indication: Pulmonary fibrosis
     Route: 048
     Dates: start: 20240108
  18. IPRATROPIUM BROMIDE [Concomitant]
     Active Substance: IPRATROPIUM BROMIDE
     Indication: Supplementation therapy
     Dosage: DOSAGE: 500 MCG
     Route: 055
     Dates: start: 20231218, end: 20231219

REACTIONS (2)
  - Respiratory failure [Fatal]
  - Fibrosis [Recovered/Resolved]

NARRATIVE: CASE EVENT DATE: 20231218
